FAERS Safety Report 19495966 (Version 1)
Quarter: 2021Q3

REPORT INFORMATION
  Report Type: Spontaneous
  Country: US (occurrence: US)
  Receive Date: 20210702
  Receipt Date: 20210702
  Transmission Date: 20211014
  Serious: Yes (Other)
  Sender: FDA-Public Use
  Company Number: None

PATIENT
  Age: 70 Year
  Sex: Male
  Weight: 72 kg

DRUGS (6)
  1. FINASTERIDE. [Concomitant]
     Active Substance: FINASTERIDE
  2. LATANOPROST. [Concomitant]
     Active Substance: LATANOPROST
  3. CALCIUM +D [Concomitant]
     Active Substance: CALCIUM\VITAMIN D
  4. XGEVA [Concomitant]
     Active Substance: DENOSUMAB
  5. LUPRON [Concomitant]
     Active Substance: LEUPROLIDE ACETATE
  6. ERLEADA [Suspect]
     Active Substance: APALUTAMIDE
     Indication: PROSTATE CANCER
     Route: 048
     Dates: start: 20210128

REACTIONS (2)
  - Sticky skin [None]
  - Skin discolouration [None]

NARRATIVE: CASE EVENT DATE: 20210702
